FAERS Safety Report 4914146-2 (Version None)
Quarter: 2006Q1

REPORT INFORMATION
  Report Type: 
  Country: None (occurrence: None)
  Receive Date: 20060216
  Receipt Date: 20060208
  Transmission Date: 20060701
  Serious: Yes (Other)
  Sender: FDA-Public Use
  Company Number: GB-GLAXOSMITHKLINE-B0410820A

PATIENT
  Sex: Male

DRUGS (1)
  1. NIQUITIN CQ 21MG [Suspect]
     Route: 062

REACTIONS (11)
  - CHEST DISCOMFORT [None]
  - CRYING [None]
  - DYSPNOEA [None]
  - INCREASED APPETITE [None]
  - INSOMNIA [None]
  - PAIN IN JAW [None]
  - PARAESTHESIA [None]
  - PHARYNGOLARYNGEAL PAIN [None]
  - SUICIDAL IDEATION [None]
  - WEIGHT INCREASED [None]
  - YAWNING [None]
